FAERS Safety Report 20856135 (Version 3)
Quarter: 2022Q2

REPORT INFORMATION
  Report Type: Spontaneous
  Country: JP (occurrence: JP)
  Receive Date: 20220520
  Receipt Date: 20220616
  Transmission Date: 20220721
  Serious: Yes (Other)
  Sender: FDA-Public Use
  Company Number: JP-MSD-M2022-18855

PATIENT
  Age: 49 Year
  Sex: Female

DRUGS (9)
  1. BRIDION [Suspect]
     Active Substance: SUGAMMADEX
     Indication: Neuromuscular blockade reversal
     Dosage: UNK
     Route: 042
     Dates: start: 20220510
  2. ROCURONIUM BROMIDE [Concomitant]
     Active Substance: ROCURONIUM BROMIDE
     Dosage: UNK
     Route: 065
  3. XYLOCAINE [Concomitant]
     Active Substance: LIDOCAINE HYDROCHLORIDE
     Dosage: UNK
     Route: 065
  4. MIDAZOLAM [Concomitant]
     Active Substance: MIDAZOLAM
     Dosage: UNK
     Route: 065
  5. DEXAMETHASONE SODIUM PHOSPHATE [Concomitant]
     Active Substance: DEXAMETHASONE SODIUM PHOSPHATE
     Dosage: UNK
     Route: 065
  6. EPHEDRINE HYDROCHLORIDE [Concomitant]
     Active Substance: EPHEDRINE HYDROCHLORIDE
     Dosage: UNK
     Route: 065
  7. SEVOFLURANE [Concomitant]
     Active Substance: SEVOFLURANE
     Dosage: UNK
     Route: 065
  8. ULTIVA [Concomitant]
     Active Substance: REMIFENTANIL HYDROCHLORIDE
     Dosage: UNK
     Route: 065
  9. FENTANYL CITRATE [Concomitant]
     Active Substance: FENTANYL CITRATE
     Dosage: UNK
     Route: 065

REACTIONS (1)
  - Toxic skin eruption [Unknown]

NARRATIVE: CASE EVENT DATE: 20220512
